FAERS Safety Report 18955646 (Version 1)
Quarter: 2021Q1

REPORT INFORMATION
  Report Type: Spontaneous
  Country: FR (occurrence: FR)
  Receive Date: 20210302
  Receipt Date: 20210302
  Transmission Date: 20210420
  Serious: Yes (Hospitalization)
  Sender: FDA-Public Use
  Company Number: FR-SUN PHARMACEUTICAL INDUSTRIES LTD-2021RR-283657

PATIENT
  Age: 78 Year
  Sex: Female

DRUGS (4)
  1. PANTOPRAZOLE [Suspect]
     Active Substance: PANTOPRAZOLE
     Indication: GASTROOESOPHAGEAL REFLUX DISEASE
     Dosage: 40 MILLIGRAM, DAILY
     Route: 048
     Dates: end: 20210105
  2. AMLODIPINE [Suspect]
     Active Substance: AMLODIPINE BESYLATE
     Indication: HYPERTENSION
     Dosage: 5 MILLIGRAM, DAILY
     Route: 048
     Dates: end: 20210105
  3. ACIDE FUSIDIQUE [Suspect]
     Active Substance: FUSIDIC ACID
     Indication: BACTERAEMIA
     Dosage: 3000 MILLIGRAM, DAILY
     Route: 048
     Dates: start: 20201030, end: 20210105
  4. DALACINE 600 MG, SOLUTION INJECTABLE (CLINDAMYCIN PHOSPHATE) [Suspect]
     Active Substance: CLINDAMYCIN PHOSPHATE
     Indication: BACTERAEMIA
     Dosage: 1800 MILLIGRAM, DAILY
     Route: 048
     Dates: start: 20201030, end: 20210105

REACTIONS (1)
  - Agranulocytosis [Recovered/Resolved]

NARRATIVE: CASE EVENT DATE: 20210105
